FAERS Safety Report 11017249 (Version 2)
Quarter: 2015Q2

REPORT INFORMATION
  Report Type: Spontaneous
  Country: US (occurrence: US)
  Receive Date: 20150412
  Receipt Date: 20150525
  Transmission Date: 20150821
  Serious: No
  Sender: FDA-Public Use
  Company Number: US-JNJFOC-20130105482

PATIENT
  Age: 14 Year
  Sex: Female
  Weight: 49.9 kg

DRUGS (3)
  1. ORTHO EVRA [Suspect]
     Active Substance: ETHINYL ESTRADIOL\NORELGESTROMIN
     Indication: AMENORRHOEA
     Route: 062
     Dates: start: 20121228
  2. UNSPECIFIED ORAL CONTRACEPTIVES [Concomitant]
     Active Substance: UNSPECIFIED INGREDIENT
     Indication: AMENORRHOEA
     Dosage: STARTED ON THE 16-DEC-2013 OR 17-DEC-2012
     Route: 048
     Dates: start: 201212, end: 201212
  3. UNSPECIFIED ORAL CONTRACEPTIVES [Suspect]
     Active Substance: UNSPECIFIED INGREDIENT
     Indication: OVARIAN CYST
     Route: 048
     Dates: start: 201212, end: 201212

REACTIONS (7)
  - Drug ineffective for unapproved indication [Unknown]
  - Product quality issue [Recovered/Resolved]
  - Malaise [Recovered/Resolved]
  - Product use issue [Unknown]
  - Nausea [Recovered/Resolved]
  - Dizziness [Recovered/Resolved]
  - Wrong technique in drug usage process [Recovered/Resolved]

NARRATIVE: CASE EVENT DATE: 201212
